FAERS Safety Report 25120374 (Version 1)
Quarter: 2025Q1

REPORT INFORMATION
  Report Type: Spontaneous
  Country: FR (occurrence: FR)
  Receive Date: 20250325
  Receipt Date: 20250325
  Transmission Date: 20250409
  Serious: Yes (Hospitalization)
  Sender: TAKEDA
  Company Number: None

PATIENT
  Age: 52 Year
  Sex: Female

DRUGS (9)
  1. BRINTELLIX [Suspect]
     Active Substance: VORTIOXETINE HYDROBROMIDE
     Indication: Depression
     Dosage: 10 MILLIGRAM, QD
     Dates: start: 2023, end: 20250312
  2. MESALAMINE [Concomitant]
     Active Substance: MESALAMINE
     Indication: Crohn^s disease
     Dosage: 1000 MILLIGRAM, BID
     Dates: start: 2023, end: 20250312
  3. DESLORATADINE [Concomitant]
     Active Substance: DESLORATADINE
     Indication: Product used for unknown indication
     Dosage: 5 MILLIGRAM, QD
     Dates: start: 2023, end: 20250312
  4. BUDESONIDE [Concomitant]
     Active Substance: BUDESONIDE
     Indication: Product used for unknown indication
     Dosage: 300 MICROGRAM, BID
     Dates: start: 2023, end: 20250312
  5. FORMOTEROL FUMARATE DIHYDRATE [Concomitant]
     Active Substance: FORMOTEROL FUMARATE DIHYDRATE
     Indication: Product used for unknown indication
     Dosage: 9 MICROGRAM, BID
     Dates: start: 2023, end: 20250312
  6. ESTRADIOL [Concomitant]
     Active Substance: ESTRADIOL
     Indication: Hormone replacement therapy
     Dosage: 1 DOSAGE FORM, QD
     Dates: start: 2023, end: 20250312
  7. ESTRADIOL [Concomitant]
     Active Substance: ESTRADIOL
     Indication: Premature menopause
  8. DUPHASTON [Concomitant]
     Active Substance: DYDROGESTERONE
     Indication: Hormone replacement therapy
     Dosage: 20 MILLIGRAM, QD
     Dates: start: 2023, end: 20250312
  9. DUPHASTON [Concomitant]
     Active Substance: DYDROGESTERONE
     Indication: Premature menopause

REACTIONS (1)
  - Reversible cerebral vasoconstriction syndrome [Not Recovered/Not Resolved]

NARRATIVE: CASE EVENT DATE: 20250308
